FAERS Safety Report 7450917-9 (Version None)
Quarter: 2011Q2

REPORT INFORMATION
  Report Type: 
  Country: None (occurrence: None)
  Receive Date: 20110502
  Receipt Date: 20110427
  Transmission Date: 20111010
  Serious: No
  Sender: FDA-Public Use
  Company Number: US-PFIZER INC-2009240259

PATIENT
  Sex: Female

DRUGS (1)
  1. ALPRAZOLAM [Suspect]
     Dosage: 0.5 MG, 6 TIMES DAILY

REACTIONS (9)
  - HYPERHIDROSIS [None]
  - RENAL DISORDER [None]
  - EMOTIONAL DISORDER [None]
  - DRUG INEFFECTIVE [None]
  - PANIC ATTACK [None]
  - HEADACHE [None]
  - AGORAPHOBIA [None]
  - INSOMNIA [None]
  - DEPRESSION [None]
